FAERS Safety Report 24111260 (Version 2)
Quarter: 2024Q3

REPORT INFORMATION
  Report Type: Spontaneous
  Country: TW (occurrence: TW)
  Receive Date: 20240718
  Receipt Date: 20240821
  Transmission Date: 20241017
  Serious: Yes (Death)
  Sender: BAYER
  Company Number: TW-BAYER-2024A104476

PATIENT
  Age: 80 Year
  Sex: Male

DRUGS (2)
  1. XOFIGO [Suspect]
     Active Substance: RADIUM RA-223 DICHLORIDE
     Indication: Hormone-refractory prostate cancer
     Dosage: FOUR TIMES TOTAL
     Dates: start: 20240321, end: 20240613
  2. XOFIGO [Suspect]
     Active Substance: RADIUM RA-223 DICHLORIDE
     Indication: Metastases to bone

REACTIONS (1)
  - Death [Fatal]

NARRATIVE: CASE EVENT DATE: 20240701
